FAERS Safety Report 22955510 (Version 2)
Quarter: 2024Q3

REPORT INFORMATION
  Report Type: Spontaneous
  Country: TR (occurrence: TR)
  Receive Date: 20230918
  Receipt Date: 20240711
  Transmission Date: 20241017
  Serious: Yes (Life-Threatening, Other)
  Sender: PIERRE FABRE MEDICAMENT
  Company Number: TR-PFM-2023-05016

PATIENT
  Age: 39 Year
  Sex: Female

DRUGS (14)
  1. PROPRANOLOL [Suspect]
     Active Substance: PROPRANOLOL HYDROCHLORIDE
     Indication: Hepatic cirrhosis
     Dosage: 40 MG EVERY MORNING AND 20 MG EVERY NIGHT
     Route: 065
  2. PROPRANOLOL [Suspect]
     Active Substance: PROPRANOLOL HYDROCHLORIDE
     Indication: Off label use
  3. ENTECAVIR [Suspect]
     Active Substance: ENTECAVIR
     Indication: Hepatic cirrhosis
     Dosage: 0.5 MG, ONCE DAILY
     Route: 065
  4. RIFAXIMIN [Suspect]
     Active Substance: RIFAXIMIN
     Indication: Hepatic cirrhosis
     Dosage: 550 MG, THREE TIMES A DAY
     Route: 065
  5. URSODIOL [Suspect]
     Active Substance: URSODIOL
     Indication: Hepatic cirrhosis
     Dosage: 250 MG, THREE TIMES A DAY
     Route: 065
  6. SUCRALFATE [Suspect]
     Active Substance: SUCRALFATE
     Indication: Hepatic cirrhosis
     Dosage: 2 G, TWICE DAILY
     Route: 065
  7. PANTOPRAZOLE [Suspect]
     Active Substance: PANTOPRAZOLE
     Indication: Hepatic cirrhosis
     Dosage: 40 MG, TWICE DAILY
     Route: 065
  8. COVID-19 VACCINE NOS [Suspect]
     Active Substance: COVID-19 VACCINE
     Indication: COVID-19
     Dosage: UNK, SINOVAC
     Route: 065
  9. COVID-19 VACCINE NOS [Suspect]
     Active Substance: COVID-19 VACCINE
     Dosage: UNK, PFIZER-BIONTECH
     Route: 065
  10. PFIZER-BIONTECH COVID-19 VACCINE [Suspect]
     Active Substance: TOZINAMERAN
     Dosage: UNK, PFIZER-BIONTECH
     Route: 065
  11. PREDNISOLONE [Suspect]
     Active Substance: PREDNISOLONE
     Indication: Product used for unknown indication
     Dosage: UNK
     Route: 065
  12. TACROLIMUS [Suspect]
     Active Substance: TACROLIMUS
     Indication: Product used for unknown indication
     Dosage: UNK
     Route: 065
  13. SULFAMETHOXAZOLE\TRIMETHOPRIM [Suspect]
     Active Substance: SULFAMETHOXAZOLE\TRIMETHOPRIM
     Indication: Product used for unknown indication
     Dosage: UNK
     Route: 065
  14. ACYCLOVIR [Suspect]
     Active Substance: ACYCLOVIR
     Indication: Product used for unknown indication
     Dosage: UNK
     Route: 065

REACTIONS (7)
  - Neutropenia [Recovering/Resolving]
  - COVID-19 [Unknown]
  - Hirsutism [Unknown]
  - Product use issue [Unknown]
  - Product use issue [Unknown]
  - Product use in unapproved indication [Unknown]
  - Off label use [Unknown]
